FAERS Safety Report 16223978 (Version 3)
Quarter: 2019Q2

REPORT INFORMATION
  Report Type: Report from Study
  Country: CA (occurrence: CA)
  Receive Date: 20190422
  Receipt Date: 20190628
  Transmission Date: 20190711
  Serious: Yes (Hospitalization, Other)
  Sender: FDA-Public Use
  Company Number: CA-JNJFOC-20180822847

PATIENT
  Age: 62 Year
  Sex: Male
  Weight: 93.9 kg

DRUGS (3)
  1. STELARA [Suspect]
     Active Substance: USTEKINUMAB
     Indication: CROHN^S DISEASE
     Dosage: STRENGTH = 90 MG
     Route: 042
     Dates: start: 20180716, end: 20180912
  2. STELARA [Suspect]
     Active Substance: USTEKINUMAB
     Route: 042
  3. STELARA [Suspect]
     Active Substance: USTEKINUMAB
     Dosage: STRENGTH = 90 MG
     Route: 042
     Dates: start: 2018

REACTIONS (16)
  - Myalgia [Not Recovered/Not Resolved]
  - Therapeutic product effect decreased [Unknown]
  - Toothache [Recovering/Resolving]
  - Glycosylated haemoglobin increased [Unknown]
  - Infected fistula [Not Recovered/Not Resolved]
  - Fistula [Not Recovered/Not Resolved]
  - Rash pruritic [Recovering/Resolving]
  - Post procedural infection [Recovering/Resolving]
  - Arthralgia [Not Recovered/Not Resolved]
  - Restless legs syndrome [Not Recovered/Not Resolved]
  - Crohn^s disease [Recovering/Resolving]
  - Off label use [Unknown]
  - Product use issue [Unknown]
  - Asthenia [Unknown]
  - Accident at work [Unknown]
  - Sinusitis [Recovering/Resolving]

NARRATIVE: CASE EVENT DATE: 2018
